FAERS Safety Report 4501685-1 (Version None)
Quarter: 2004Q4

REPORT INFORMATION
  Report Type: 
  Country: None (occurrence: None)
  Receive Date: 20041109
  Receipt Date: 20041026
  Transmission Date: 20050328
  Serious: Yes (Hospitalization)
  Sender: FDA-Public Use
  Company Number: 2004AC00641

PATIENT
  Age: 38 Year
  Sex: Female

DRUGS (9)
  1. SEROQUEL [Suspect]
     Indication: MAJOR DEPRESSION
     Dosage: 200 MG DAILY PO
     Route: 048
     Dates: start: 20040913
  2. SEROQUEL [Suspect]
     Indication: MAJOR DEPRESSION
     Dosage: 500 MG DAILY PO
     Route: 048
  3. SREOQUEL [Suspect]
     Indication: MAJOR DEPRESSION
     Dosage: 200 MG BID PO
     Route: 048
     Dates: start: 20041022
  4. REDOMEX [Concomitant]
  5. IMPROMEN [Concomitant]
  6. AKINETON [Concomitant]
  7. EFFORTIL [Concomitant]
  8. SEROXAT [Concomitant]
  9. XANAX RETARD [Concomitant]

REACTIONS (3)
  - CIRCULATORY COLLAPSE [None]
  - EPILEPSY [None]
  - HYPERPROLACTINAEMIA [None]
